FAERS Safety Report 7474792-1 (Version None)
Quarter: 2011Q2

REPORT INFORMATION
  Report Type: 
  Country: None (occurrence: None)
  Receive Date: 20110512
  Receipt Date: 20110502
  Transmission Date: 20111010
  Serious: Yes (Other)
  Sender: FDA-Public Use
  Company Number: US-BAYER-201032146NA

PATIENT
  Age: 24 Year
  Sex: Female
  Weight: 86.621 kg

DRUGS (7)
  1. YASMIN [Suspect]
     Indication: ORAL CONTRACEPTION
     Dosage: UNK UNK, QD
     Route: 048
     Dates: start: 20090301
  2. NICODERM [Concomitant]
  3. WARFARIN SODIUM [Concomitant]
     Dosage: 5 MG, UNK
  4. YAZ [Suspect]
     Indication: ORAL CONTRACEPTION
     Dosage: UNK UNK, QD
     Dates: start: 20090301
  5. LEVAQUIN [Concomitant]
     Dosage: 750 MG, UNK
  6. IBUPROFEN [Concomitant]
     Indication: UPPER RESPIRATORY TRACT INFECTION
  7. PERCOCET [Concomitant]
     Indication: UPPER RESPIRATORY TRACT INFECTION

REACTIONS (1)
  - PULMONARY EMBOLISM [None]
